FAERS Safety Report 9614535 (Version 1)
Quarter: 2013Q4

REPORT INFORMATION
  Report Type: Report from Study
  Country: BR (occurrence: BR)
  Receive Date: 20131011
  Receipt Date: 20131011
  Transmission Date: 20140711
  Serious: Yes (Hospitalization, Other)
  Sender: FDA-Public Use
  Company Number: PHHY2013BR114097

PATIENT
  Age: 86 Year
  Sex: Female

DRUGS (2)
  1. ONBREZ [Suspect]
     Indication: DYSPNOEA
     Dosage: 150 UG, BID
     Dates: start: 201303
  2. ONBREZ [Suspect]
     Indication: OFF LABEL USE

REACTIONS (5)
  - Upper limb fracture [Recovering/Resolving]
  - Fracture pain [Recovering/Resolving]
  - Dyspnoea [Recovering/Resolving]
  - Hyperkeratosis [Recovering/Resolving]
  - Inappropriate schedule of drug administration [Unknown]
